FAERS Safety Report 4930119-8 (Version None)
Quarter: 2006Q1

REPORT INFORMATION
  Report Type: 
  Country: None (occurrence: None)
  Receive Date: 20060228
  Receipt Date: 20060213
  Transmission Date: 20060701
  Serious: Yes (Other)
  Sender: FDA-Public Use
  Company Number: UY-2006-002965

PATIENT
  Age: 44 Year
  Sex: Female
  Weight: 62 kg

DRUGS (3)
  1. MIRENA [Suspect]
     Indication: MENORRHAGIA
     Dosage: 20 UG/DAY, CONT, INTRA-UTERINE
     Route: 015
     Dates: start: 20050801, end: 20051209
  2. T4 (LEVOTH YROXINE SODIUM) [Concomitant]
  3. ACETAZOLAMIDE [Concomitant]

REACTIONS (2)
  - PAPILLOEDEMA [None]
  - TENSION HEADACHE [None]
